FAERS Safety Report 9902806 (Version 1)
Quarter: 2014Q1

REPORT INFORMATION
  Report Type: Spontaneous
  Country: AR (occurrence: AR)
  Receive Date: 20140217
  Receipt Date: 20140217
  Transmission Date: 20141002
  Serious: Yes (Hospitalization)
  Sender: FDA-Public Use
  Company Number: PHHY2014AR018745

PATIENT
  Sex: Female

DRUGS (1)
  1. EXELON [Suspect]
     Indication: CONFUSIONAL STATE
     Dosage: 2 DF, DAILY
     Route: 048
     Dates: start: 2004

REACTIONS (1)
  - Pulmonary oedema [Recovering/Resolving]
